FAERS Safety Report 11538078 (Version 3)
Quarter: 2015Q4

REPORT INFORMATION
  Report Type: Spontaneous
  Country: US (occurrence: US)
  Receive Date: 20150922
  Receipt Date: 20151005
  Transmission Date: 20160304
  Serious: Yes (Other)
  Sender: FDA-Public Use
  Company Number: US-BAYER-2015-425035

PATIENT
  Sex: Female

DRUGS (1)
  1. BETASERON [Suspect]
     Active Substance: INTERFERON BETA-1B
     Indication: MULTIPLE SCLEROSIS
     Dosage: UNK
     Dates: start: 2008, end: 201103

REACTIONS (11)
  - Multiple sclerosis relapse [None]
  - Drug ineffective [None]
  - Multiple sclerosis [None]
  - Band sensation [None]
  - Multiple sclerosis [None]
  - Neutralising antibodies [None]
  - Asthenia [None]
  - Balance disorder [None]
  - Multiple sclerosis relapse [None]
  - Multiple sclerosis relapse [None]
  - Multiple sclerosis relapse [None]

NARRATIVE: CASE EVENT DATE: 2008
